FAERS Safety Report 12181748 (Version 6)
Quarter: 2023Q2

REPORT INFORMATION
  Report Type: Spontaneous
  Country: ES (occurrence: ES)
  Receive Date: 20160315
  Receipt Date: 20230601
  Transmission Date: 20230722
  Serious: Yes (Death, Life-Threatening, Hospitalization, Other)
  Sender: FDA-Public Use
  Company Number: ES-SA-2016SA049265

PATIENT
  Age: 42 Year
  Sex: Female
  Weight: 60 kg

DRUGS (6)
  1. LEMTRADA [Suspect]
     Active Substance: ALEMTUZUMAB
     Indication: Multiple sclerosis
     Dosage: 12 DF, QD
     Route: 042
     Dates: start: 20160208, end: 20160212
  2. BACLOFEN [Concomitant]
     Active Substance: BACLOFEN
     Indication: Muscle spasticity
     Dosage: 25 MG,UNK
     Route: 048
  3. ACYCLOVIR [Concomitant]
     Active Substance: ACYCLOVIR
     Indication: Antiviral prophylaxis
     Dosage: 200 MG,Q12H
     Route: 048
     Dates: start: 20160208
  4. SOLIFENACIN [Concomitant]
     Active Substance: SOLIFENACIN
     Indication: Urinary tract disorder
     Dosage: 5 MG,QD
     Route: 048
     Dates: start: 2013
  5. TAMSULOSIN [Concomitant]
     Active Substance: TAMSULOSIN
     Indication: Urinary tract disorder
     Dosage: 400 MG,QD
     Route: 048
     Dates: start: 2013
  6. TOCOPHEROL [Concomitant]
     Active Substance: TOCOPHEROL
     Indication: Vitamin supplementation
     Dosage: 200 MG,QD
     Route: 048
     Dates: start: 2013

REACTIONS (10)
  - Pneumonia aspiration [Fatal]
  - Brain abscess [Recovering/Resolving]
  - Pyrexia [Recovered/Resolved]
  - Somnolence [Recovered/Resolved]
  - Seizure [Recovered/Resolved]
  - Malaise [Recovering/Resolving]
  - Ear pain [Unknown]
  - Toxoplasmosis [Unknown]
  - Lymphocyte count decreased [Unknown]
  - Rash [Unknown]

NARRATIVE: CASE EVENT DATE: 20160225
